FAERS Safety Report 24900956 (Version 1)
Quarter: 2025Q1

REPORT INFORMATION
  Report Type: Spontaneous
  Country: ZA (occurrence: ZA)
  Receive Date: 20250129
  Receipt Date: 20250129
  Transmission Date: 20250409
  Serious: Yes (Death, Hospitalization, Other)
  Sender: BRISTOL-MYERS SQUIBB COMPANY
  Company Number: ZA-BRISTOL-MYERS SQUIBB COMPANY-2025-001923

PATIENT
  Sex: Male

DRUGS (5)
  1. THALIDOMIDE [Suspect]
     Active Substance: THALIDOMIDE
     Indication: Plasma cell myeloma
     Route: 048
     Dates: start: 202401
  2. THALIDOMIDE [Suspect]
     Active Substance: THALIDOMIDE
     Dates: end: 202408
  3. NPLATE [Concomitant]
     Active Substance: ROMIPLOSTIM
     Indication: Platelet count decreased
  4. BORTEZOMIB [Concomitant]
     Active Substance: BORTEZOMIB
     Indication: Product used for unknown indication
     Dosage: FREQ: DAY 1 AND 15 OF EVERY 28-DAY TREATMENT CYCLE
     Route: 058
  5. POLYGAM [Concomitant]
     Active Substance: HUMAN IMMUNOGLOBULIN G
     Indication: Hypogammaglobulinaemia

REACTIONS (2)
  - Sepsis [Fatal]
  - Renal disorder [Unknown]
